FAERS Safety Report 13329388 (Version 1)
Quarter: 2017Q1

REPORT INFORMATION
  Report Type: Spontaneous
  Country: PL (occurrence: PL)
  Receive Date: 20170313
  Receipt Date: 20170313
  Transmission Date: 20170428
  Serious: Yes (Other)
  Sender: FDA-Public Use
  Company Number: PL-REGENERON PHARMACEUTICALS, INC.-2015-11104

PATIENT

DRUGS (3)
  1. EYLEA [Suspect]
     Active Substance: AFLIBERCEPT
     Indication: MACULAR DEGENERATION
     Dosage: UNK
     Dates: start: 20141003, end: 20141209
  2. FLOXAL [Concomitant]
     Active Substance: OFLOXACIN
     Indication: PREMEDICATION
  3. POVIDONE IODIDE [Suspect]
     Active Substance: POVIDONE-IODINE
     Indication: PRODUCT USED FOR UNKNOWN INDICATION

REACTIONS (4)
  - Visual impairment [Unknown]
  - Vitreous opacities [Unknown]
  - Eye disorder [Unknown]
  - Retinal infiltrates [Unknown]

NARRATIVE: CASE EVENT DATE: 20150128
